FAERS Safety Report 6942049-0 (Version None)
Quarter: 2010Q3

REPORT INFORMATION
  Report Type: 
  Country: None (occurrence: None)
  Receive Date: 20100826
  Receipt Date: 20100818
  Transmission Date: 20110219
  Serious: Yes (Other)
  Sender: FDA-Public Use
  Company Number: US-BAYER-201019257BCC

PATIENT
  Age: 30 Year
  Sex: Female
  Weight: 54 kg

DRUGS (2)
  1. ALEVE (CAPLET) [Suspect]
     Indication: HEADACHE
     Dosage: UNIT DOSE: 220 MG
     Route: 048
     Dates: start: 20100817
  2. BEER [Concomitant]
     Route: 048
     Dates: start: 20100817

REACTIONS (4)
  - DYSPEPSIA [None]
  - HEADACHE [None]
  - URINARY RETENTION [None]
  - VOMITING [None]
